FAERS Safety Report 18410436 (Version 1)
Quarter: 2020Q4

REPORT INFORMATION
  Report Type: Spontaneous
  Country: CA (occurrence: CA)
  Receive Date: 20201021
  Receipt Date: 20201021
  Transmission Date: 20210114
  Serious: Yes (Hospitalization, Other)
  Sender: FDA-Public Use
  Company Number: CA-AMGEN-CANSP2020167805

PATIENT
  Age: 41 Year
  Sex: Female

DRUGS (8)
  1. CISPLATIN. [Concomitant]
     Active Substance: CISPLATIN
  2. PACLITAXEL. [Concomitant]
     Active Substance: PACLITAXEL
  3. DOCETAXEL. [Concomitant]
     Active Substance: DOCETAXEL
  4. LIPOSOMAL DOXORUBICIN HYDROCHLORIDE [Concomitant]
     Active Substance: DOXORUBICIN HYDROCHLORIDE
  5. CARBOPLATIN. [Concomitant]
     Active Substance: CARBOPLATIN
  6. GEMCITABINE. [Concomitant]
     Active Substance: GEMCITABINE
  7. RUCAPARIB [Concomitant]
     Active Substance: RUCAPARIB
  8. BEVACIZUMAB. [Suspect]
     Active Substance: BEVACIZUMAB
     Indication: OVARIAN EPITHELIAL CANCER
     Dosage: UNK
     Route: 065

REACTIONS (19)
  - Electrocardiogram QRS complex abnormal [Recovering/Resolving]
  - Electrocardiogram T wave abnormal [Recovering/Resolving]
  - Hypotension [Recovering/Resolving]
  - Metastases to liver [Recovering/Resolving]
  - Bowel movement irregularity [Recovering/Resolving]
  - Cardiomegaly [Recovering/Resolving]
  - Lymphadenopathy [Recovering/Resolving]
  - Orthopnoea [Recovering/Resolving]
  - Pericardial effusion [Recovered/Resolved]
  - Retroperitoneal mass [Recovering/Resolving]
  - Asthenia [Recovering/Resolving]
  - Tachycardia [Recovering/Resolving]
  - Vena cava thrombosis [Recovering/Resolving]
  - Pulmonary embolism [Recovering/Resolving]
  - Cardiac tamponade [Recovering/Resolving]
  - Pleural effusion [Recovering/Resolving]
  - Renal vein thrombosis [Recovering/Resolving]
  - Abdominal distension [Recovering/Resolving]
  - Portal vein thrombosis [Recovering/Resolving]
